FAERS Safety Report 9963914 (Version 1)
Quarter: 2014Q1

REPORT INFORMATION
  Report Type: Spontaneous
  Country: FR (occurrence: FR)
  Receive Date: 20140305
  Receipt Date: 20140305
  Transmission Date: 20141002
  Serious: Yes (Hospitalization, Other)
  Sender: FDA-Public Use
  Company Number: FR-PFIZER INC-2014061132

PATIENT
  Age: 29 Year
  Sex: Male

DRUGS (3)
  1. LYRICA [Suspect]
     Indication: PAIN
     Dosage: UNK
     Route: 048
     Dates: start: 20140124, end: 20140204
  2. PRIMPERAN [Suspect]
     Indication: VOMITING
     Dosage: UNK
     Route: 048
     Dates: start: 20140124, end: 20140204
  3. DAFALGAN [Concomitant]
     Dosage: UNK
     Route: 048
     Dates: start: 20140125, end: 20140203

REACTIONS (5)
  - Hepatocellular injury [Recovering/Resolving]
  - Aspartate aminotransferase increased [Recovering/Resolving]
  - Alanine aminotransferase increased [Recovering/Resolving]
  - White blood cell count increased [Recovered/Resolved]
  - C-reactive protein increased [Recovering/Resolving]
